FAERS Safety Report 6978583-7 (Version None)
Quarter: 2010Q3

REPORT INFORMATION
  Report Type: 
  Country: None (occurrence: None)
  Receive Date: 20100913
  Receipt Date: 20100901
  Transmission Date: 20110219
  Serious: Yes (Hospitalization, Other)
  Sender: FDA-Public Use
  Company Number: JP-ROCHE-690118

PATIENT
  Sex: Female
  Weight: 38 kg

DRUGS (7)
  1. AVASTIN [Suspect]
     Indication: ADENOSQUAMOUS CELL LUNG CANCER RECURRENT
     Route: 041
     Dates: start: 20091216
  2. AVASTIN [Suspect]
     Dosage: DOSAGE IS UNCERTAIN
     Route: 041
     Dates: end: 20100224
  3. CARBOPLATIN [Concomitant]
     Dosage: DOSAGE IS UNCERTAIN
     Route: 041
  4. CARBOPLATIN [Concomitant]
     Dosage: DOSAGE IS UNCERTAIN
     Route: 041
     Dates: end: 20100224
  5. PACLITAXEL [Concomitant]
     Dosage: DOSE REPORTED AS 200MG/M^2
     Route: 041
  6. ALIMTA [Concomitant]
     Dosage: DRUG: ALIMTA(PEMETREXED SODIUM HYDRATE);  DOSAGE IS UNCERTAIN
     Route: 041
     Dates: end: 20100224
  7. BENET [Concomitant]
     Dosage: DRUG: BENET(SODIUM RISEDRONATE HYDRATE)
     Route: 048
     Dates: start: 20091216

REACTIONS (9)
  - ABDOMINAL DISCOMFORT [None]
  - ARRHYTHMIA SUPRAVENTRICULAR [None]
  - DECREASED APPETITE [None]
  - INSOMNIA [None]
  - MALAISE [None]
  - NAUSEA [None]
  - NEUTROPHIL COUNT DECREASED [None]
  - PLATELET COUNT DECREASED [None]
  - SUPRAVENTRICULAR TACHYCARDIA [None]
